FAERS Safety Report 25571344 (Version 1)
Quarter: 2025Q3

REPORT INFORMATION
  Report Type: Other
  Country: GB (occurrence: GB)
  Receive Date: 20250717
  Receipt Date: 20250717
  Transmission Date: 20251021
  Serious: Yes (Other)
  Sender: MACLEODS
  Company Number: GB-MHRA-TPP3778185C10999211YC1751659557535

PATIENT

DRUGS (24)
  1. LEVOFLOXACIN [Suspect]
     Active Substance: LEVOFLOXACIN
     Indication: Product used for unknown indication
     Route: 065
  2. Medi derma-pro [Concomitant]
     Indication: Ill-defined disorder
     Route: 065
     Dates: start: 20250602, end: 20250630
  3. BENZALKONIUM CHLORIDE\DIMETHICONE\HYDROCORTISONE\NYSTATIN [Concomitant]
     Active Substance: BENZALKONIUM CHLORIDE\DIMETHICONE\HYDROCORTISONE\NYSTATIN
     Dosage: APPLY 3 TIMES/DAY UNTIL THE LESIONS HAVE HEALED
     Route: 065
     Dates: start: 20250602, end: 20250616
  4. NITROFURANTOIN [Concomitant]
     Active Substance: NITROFURANTOIN
     Indication: Ill-defined disorder
     Dosage: TAKE ONE CAPSULE TWICE DAILY FOR 7 DAYS, TO TRE...
     Route: 065
     Dates: start: 20250617, end: 20250624
  5. DOXYCYCLINE [Concomitant]
     Active Substance: DOXYCYCLINE
     Indication: Ill-defined disorder
     Route: 065
     Dates: start: 20250623, end: 20250630
  6. COTRIMOXAZOLE [Concomitant]
     Active Substance: SULFAMETHOXAZOLE\TRIMETHOPRIM
     Indication: Ill-defined disorder
     Dosage: ONE TABLET TWICE A DAY FOR 5 DAYS
     Route: 065
     Dates: start: 20250704
  7. BACLOFEN [Concomitant]
     Active Substance: BACLOFEN
     Indication: Ill-defined disorder
     Dosage: TAKE 2 TABLETS 5 TIMES A DAY
     Route: 065
     Dates: start: 20250306
  8. Bupeaze [Concomitant]
     Indication: Analgesic therapy
     Route: 065
     Dates: start: 20250306
  9. CODEINE PHOSPHATE [Concomitant]
     Active Substance: CODEINE PHOSPHATE
     Indication: Ill-defined disorder
     Dosage: ONE TO TWO FOUR TIMES A DAY PRN MAX 240MG IN 24...
     Route: 065
     Dates: start: 20250306
  10. DOCUSATE SODIUM [Concomitant]
     Active Substance: DOCUSATE SODIUM
     Indication: Ill-defined disorder
     Dosage: TAKE ONE CAPSULE DAILY
     Route: 065
     Dates: start: 20250306
  11. FAMOTIDINE [Concomitant]
     Active Substance: FAMOTIDINE
     Indication: Ill-defined disorder
     Dosage: TAKE ONE AT NIGHT
     Route: 065
     Dates: start: 20250306
  12. FERROUS SULFATE [Concomitant]
     Active Substance: FERROUS SULFATE
     Indication: Ill-defined disorder
     Dosage: TAKE ONE TABLET ONCE A DAY BEFORE FOOD FOR IRON...
     Route: 065
     Dates: start: 20250306, end: 20250513
  13. FUROSEMIDE [Concomitant]
     Active Substance: FUROSEMIDE
     Indication: Ill-defined disorder
     Dosage: TAKE ONE EACH MORNING
     Route: 065
     Dates: start: 20250306
  14. LANSOPRAZOLE [Concomitant]
     Active Substance: LANSOPRAZOLE
     Indication: Ill-defined disorder
     Dosage: TAKE ONE DAILY
     Route: 065
     Dates: start: 20250306
  15. Medi derma-s [Concomitant]
     Indication: Ill-defined disorder
     Route: 065
     Dates: start: 20250306
  16. MORPHINE SULFATE [Concomitant]
     Active Substance: MORPHINE SULFATE
     Indication: Ill-defined disorder
     Route: 065
     Dates: start: 20250306
  17. ONDANSETRON [Concomitant]
     Active Substance: ONDANSETRON
     Indication: Ill-defined disorder
     Dosage: TAKE ONE THREE TIMES A DAY WHEN REQUIRED
     Route: 065
     Dates: start: 20250306
  18. OXYBUTYNIN [Concomitant]
     Active Substance: OXYBUTYNIN
     Indication: Ill-defined disorder
     Route: 065
     Dates: start: 20250306
  19. ALBUTEROL [Concomitant]
     Active Substance: ALBUTEROL
     Indication: Ill-defined disorder
     Dates: start: 20250306
  20. SENNA [Concomitant]
     Active Substance: SENNOSIDES
     Indication: Constipation
     Dosage: TAKE 2 AT NIGHT FOR CONSTIPATION
     Route: 065
     Dates: start: 20250306
  21. FLUTICASONE PROPIONATE\SALMETEROL XINAFOATE [Concomitant]
     Active Substance: FLUTICASONE PROPIONATE\SALMETEROL XINAFOATE
     Indication: Ill-defined disorder
     Dosage: INHALE 2 DOSES TWICE DAILY
     Dates: start: 20250306
  22. WARFARIN SODIUM [Concomitant]
     Active Substance: WARFARIN SODIUM
     Indication: Ill-defined disorder
     Route: 065
     Dates: start: 20250306
  23. Macrogol compound [Concomitant]
     Indication: Ill-defined disorder
     Dosage: ONE TO FIVE SACHETS DAILY
     Route: 065
     Dates: start: 20250326
  24. SODIUM CHLORIDE [Concomitant]
     Active Substance: SODIUM CHLORIDE
     Indication: Ill-defined disorder
     Dosage: 5ML FOUR TIMES A DAY
     Route: 065
     Dates: start: 20250701

REACTIONS (3)
  - Chest discomfort [Unknown]
  - Lip swelling [Unknown]
  - Angioedema [Recovered/Resolved]
